FAERS Safety Report 4288752-5 (Version None)
Quarter: 2004Q1

REPORT INFORMATION
  Report Type: 
  Country: None (occurrence: None)
  Receive Date: 20040130
  Receipt Date: 20030324
  Transmission Date: 20041129
  Serious: Yes (Other)
  Sender: FDA-Public Use
  Company Number: PHEH2003US01390

PATIENT
  Age: 14 Year
  Sex: Male
  Weight: 60.3 kg

DRUGS (2)
  1. RITALIN LA [Suspect]
     Indication: ATTENTION DEFICIT/HYPERACTIVITY DISORDER
     Dosage: 40 MG, QD, ORAL
     Route: 048
     Dates: start: 20021231, end: 20030131
  2. RITALIN [Suspect]
     Indication: ATTENTION DEFICIT/HYPERACTIVITY DISORDER
     Dosage: 10 MG, Q4PM, ORAL
     Route: 048
     Dates: start: 20021231, end: 20030131

REACTIONS (1)
  - CHEST PAIN [None]
